FAERS Safety Report 16060880 (Version 5)
Quarter: 2019Q2

REPORT INFORMATION
  Report Type: Report from Study
  Country: None (occurrence: GB)
  Receive Date: 20190312
  Receipt Date: 20190427
  Transmission Date: 20190711
  Serious: Yes (Hospitalization)
  Sender: FDA-Public Use
  Company Number: GB-ABBVIE-19S-167-2692876-00

PATIENT
  Age: 66 Year
  Sex: Male

DRUGS (4)
  1. DUODOPA [Suspect]
     Active Substance: CARBIDOPA\LEVODOPA
     Dosage: 100 ML CASSETTE DAILY CONTINUOUS RATE INCREASED TO 1.7ML A DAY
     Route: 050
     Dates: start: 201903, end: 20190423
  2. DUODOPA [Suspect]
     Active Substance: CARBIDOPA\LEVODOPA
     Dosage: CONTINUOUS RATE INCREASED TO 1.6 ML
     Route: 050
     Dates: end: 201903
  3. DUODOPA [Suspect]
     Active Substance: CARBIDOPA\LEVODOPA
     Dosage: 100ML CASSETTE DAILY, CONTINUOUS RATE REDUCED BACK TO 1.6 ML PER/HOUR
     Route: 050
     Dates: start: 20190423
  4. DUODOPA [Suspect]
     Active Substance: CARBIDOPA\LEVODOPA
     Indication: PARKINSON^S DISEASE
     Dosage: ONE 100ML CASSETTE DAILY 5MG/1ML 20MG/1ML, 1.6 ML
     Route: 050

REACTIONS (6)
  - Dyskinesia [Unknown]
  - Somnolence [Unknown]
  - Gait disturbance [Unknown]
  - Malaise [Unknown]
  - Drug ineffective [Unknown]
  - Constipation [Recovered/Resolved]

NARRATIVE: CASE EVENT DATE: 2019
